FAERS Safety Report 10145004 (Version 1)
Quarter: 2014Q2

REPORT INFORMATION
  Report Type: Report from Study
  Country: US (occurrence: US)
  Receive Date: 20140501
  Receipt Date: 20140501
  Transmission Date: 20141212
  Serious: Yes (Death)
  Sender: FDA-Public Use
  Company Number: GXBR2014US001157

PATIENT
  Age: 77 Year
  Sex: Female

DRUGS (1)
  1. ENOXAPARIN SODIUM [Suspect]
     Indication: PULMONARY EMBOLISM
     Dosage: 90 MG, QD
     Route: 058

REACTIONS (2)
  - Oncologic complication [Fatal]
  - Lung neoplasm malignant [Fatal]
